FAERS Safety Report 7209202-2 (Version None)
Quarter: 2011Q1

REPORT INFORMATION
  Report Type: 
  Country: None (occurrence: None)
  Receive Date: 20110104
  Receipt Date: 20101214
  Transmission Date: 20110831
  Serious: Yes (Hospitalization)
  Sender: FDA-Public Use
  Company Number: A0791235A

PATIENT
  Age: 28 Year
  Sex: Female
  Weight: 110.9 kg

DRUGS (17)
  1. AVANDAMET [Suspect]
     Indication: DIABETES MELLITUS
     Route: 048
     Dates: start: 20031004, end: 20041102
  2. LEXAPRO [Concomitant]
  3. GLIPIZIDE [Concomitant]
  4. PREVACID [Concomitant]
  5. INSULIN [Concomitant]
  6. RISPERDAL [Concomitant]
  7. DEPAKOTE [Concomitant]
  8. LISINOPRIL [Concomitant]
  9. EFFEXOR [Concomitant]
  10. HYDROCHLOROTHIAZIDE [Concomitant]
  11. GLUCOPHAGE [Concomitant]
  12. ATIVAN [Concomitant]
  13. ZOCOR [Concomitant]
  14. BENZTROPINE MESYLATE [Concomitant]
  15. AVANDIA [Suspect]
     Indication: DIABETES MELLITUS
     Dosage: 8MG PER DAY
     Route: 048
     Dates: start: 20000101
  16. COGENTIN [Concomitant]
  17. TOPAMAX [Concomitant]

REACTIONS (2)
  - ATRIAL FIBRILLATION [None]
  - CARDIAC FAILURE CONGESTIVE [None]
